FAERS Safety Report 7737593-2 (Version None)
Quarter: 2011Q3

REPORT INFORMATION
  Report Type: 
  Country: None (occurrence: None)
  Receive Date: 20110908
  Receipt Date: 20110831
  Transmission Date: 20111222
  Serious: Yes (Other)
  Sender: FDA-Public Use
  Company Number: CA-MERCK-1108USA03723

PATIENT
  Age: 65 Year
  Sex: Female

DRUGS (1)
  1. SINEMET [Suspect]
     Route: 048

REACTIONS (3)
  - ADVERSE EVENT [None]
  - CONVULSION [None]
  - DYSPEPSIA [None]
